FAERS Safety Report 4407941-X (Version None)
Quarter: 2004Q2

REPORT INFORMATION
  Report Type: 
  Country: None (occurrence: None)
  Receive Date: 20040618
  Receipt Date: 20040324
  Transmission Date: 20050107
  Serious: No
  Sender: FDA-Public Use
  Company Number: US-JNJFOC-20040305615

PATIENT
  Age: 49 Year
  Sex: Female
  Weight: 74.8435 kg

DRUGS (2)
  1. ORTHO EVRA [Suspect]
     Indication: HORMONE REPLACEMENT THERAPY
     Dosage: 1 DOSE(S), 3 IN 4 WEEK, TRANSDERMAL
     Route: 062
  2. BENEDRYL (DIPHENHYDRAMINE HYDROCHLORIDE) [Concomitant]

REACTIONS (3)
  - DEPRESSION [None]
  - DIARRHOEA [None]
  - DYSPEPSIA [None]
